FAERS Safety Report 14631341 (Version 1)
Quarter: 2018Q1

REPORT INFORMATION
  Report Type: Spontaneous
  Country: ES (occurrence: ES)
  Receive Date: 20180313
  Receipt Date: 20180313
  Transmission Date: 20180509
  Serious: Yes (Other)
  Sender: FDA-Public Use
  Company Number: ES-PFIZER INC-2018098955

PATIENT
  Age: 48 Year
  Sex: Female
  Weight: 54 kg

DRUGS (1)
  1. IRINOTECAN HCL [Suspect]
     Active Substance: IRINOTECAN HYDROCHLORIDE
     Indication: COLON NEOPLASM
     Dosage: 180 MG/M2, CYCLIC (EVERY14 DAYS, TOTAL DOSE: 270 MG)
     Route: 041
     Dates: start: 20180104, end: 20180104

REACTIONS (4)
  - Sensation of foreign body [Recovered/Resolved]
  - Dyskinesia [Recovered/Resolved]
  - Myoclonus [Recovered/Resolved]
  - Dyslalia [Recovered/Resolved]

NARRATIVE: CASE EVENT DATE: 20180104
